FAERS Safety Report 8522023-3 (Version None)
Quarter: 2012Q3

REPORT INFORMATION
  Report Type: 
  Country: None (occurrence: None)
  Receive Date: 20120719
  Receipt Date: 20120710
  Transmission Date: 20120928
  Serious: Yes (Death, Hospitalization, Other)
  Sender: FDA-Public Use
  Company Number: US-BRISTOL-MYERS SQUIBB COMPANY-16756504

PATIENT
  Age: 68 Year
  Sex: Female
  Weight: 56 kg

DRUGS (6)
  1. HYDREA [Suspect]
     Indication: LEUKOCYTOSIS
     Route: 048
  2. DIFLUCAN [Concomitant]
     Indication: INFECTION PROPHYLAXIS
     Dates: start: 20120515
  3. CYTARABINE [Suspect]
  4. VALTREX [Concomitant]
     Indication: INFECTION PROPHYLAXIS
  5. LEVAQUIN [Concomitant]
     Indication: INFECTION PROPHYLAXIS
  6. MORPHINE SULFATE [Concomitant]
     Indication: STOMATITIS
     Dates: start: 20120515

REACTIONS (5)
  - ATRIAL FIBRILLATION [None]
  - STOMATITIS [None]
  - NEOPLASM MALIGNANT [None]
  - TONGUE ULCERATION [None]
  - GASTRODUODENITIS [None]
